FAERS Safety Report 7167069-5 (Version None)
Quarter: 2010Q4

REPORT INFORMATION
  Report Type: 
  Country: None (occurrence: None)
  Receive Date: 20101213
  Receipt Date: 20101213
  Transmission Date: 20110411
  Serious: Yes (Life-Threatening, Hospitalization, Other)
  Sender: FDA-Public Use
  Company Number: None

PATIENT
  Age: 18 Year
  Sex: Female
  Weight: 73.0291 kg

DRUGS (1)
  1. SEROQUEL [Suspect]

REACTIONS (11)
  - ABASIA [None]
  - AMNESIA [None]
  - ANGER [None]
  - CONDITION AGGRAVATED [None]
  - DYSSTASIA [None]
  - HALLUCINATIONS, MIXED [None]
  - PHYSICAL ASSAULT [None]
  - PSYCHOTIC DISORDER [None]
  - SOMNOLENCE [None]
  - UNEVALUABLE EVENT [None]
  - WEIGHT INCREASED [None]
